FAERS Safety Report 18193992 (Version 3)
Quarter: 2020Q3

REPORT INFORMATION
  Report Type: Spontaneous
  Country: US (occurrence: US)
  Receive Date: 20200825
  Receipt Date: 20200908
  Transmission Date: 20201103
  Serious: No
  Sender: FDA-Public Use
  Company Number: US-PFIZER INC-2018524874

PATIENT
  Age: 72 Year
  Sex: Female
  Weight: 65.76 kg

DRUGS (7)
  1. LYRICA [Suspect]
     Active Substance: PREGABALIN
     Indication: SPINAL OSTEOARTHRITIS
  2. LYRICA [Suspect]
     Active Substance: PREGABALIN
     Indication: LUMBAR SPINAL STENOSIS
  3. LYRICA [Suspect]
     Active Substance: PREGABALIN
     Indication: POST LAMINECTOMY SYNDROME
  4. LYRICA [Suspect]
     Active Substance: PREGABALIN
     Indication: BACK PAIN
     Dosage: 100 MG, AS NEEDED (1 EVERY 8 HOURS PRN (AS NEEDED) NERVE PAIN FOR 90 DAYS)
  5. LYRICA [Suspect]
     Active Substance: PREGABALIN
     Indication: NEURALGIA
  6. GABAPENTIN. [Suspect]
     Active Substance: GABAPENTIN
     Dosage: 600 MG, AS NEEDED ((1 TABLET EVERY 8 HOURS PRN (AS NEEDED) FOR 30 DAYS)
  7. LYRICA [Suspect]
     Active Substance: PREGABALIN
     Indication: PAIN
     Dosage: 50 MG, 3X/DAY
     Route: 048

REACTIONS (5)
  - Insomnia [Unknown]
  - Asthenia [Unknown]
  - Back pain [Unknown]
  - Hypoaesthesia [Unknown]
  - Depressed mood [Unknown]
